FAERS Safety Report 14262619 (Version 1)
Quarter: 2017Q4

REPORT INFORMATION
  Report Type: Spontaneous
  Country: US (occurrence: US)
  Receive Date: 20171208
  Receipt Date: 20171208
  Transmission Date: 20180321
  Serious: No
  Sender: FDA-Public Use
  Company Number: US-PFIZER INC-2017524814

PATIENT
  Age: 67 Year
  Sex: Male
  Weight: 78.2 kg

DRUGS (6)
  1. PROGRAF [Concomitant]
     Active Substance: TACROLIMUS\TACROLIMUS ANHYDROUS
     Dosage: 2 MG, DAILY(DROPPED DOWN TO 2MG A DAY)
  2. RAPAMUNE [Suspect]
     Active Substance: SIROLIMUS
     Indication: IMMUNOSUPPRESSANT DRUG THERAPY
     Dosage: 0.5 MG, UNK
     Dates: start: 2017
  3. RAPAMUNE [Suspect]
     Active Substance: SIROLIMUS
     Dosage: 1 MG, DAILY (0.5MG TABLET, TWO TABLETS BY MOUTH, PER DAY)
     Route: 048
     Dates: end: 20171114
  4. DAPSONE. [Concomitant]
     Active Substance: DAPSONE
     Indication: FUNGAL INFECTION
     Dosage: UNK
     Dates: start: 20130813
  5. PROGRAF [Concomitant]
     Active Substance: TACROLIMUS\TACROLIMUS ANHYDROUS
     Indication: IMMUNOSUPPRESSANT DRUG THERAPY
     Dosage: 3 MG, DAILY(3 MG A DAY)
     Route: 048
     Dates: start: 20130813
  6. PREDNISONE. [Concomitant]
     Active Substance: PREDNISONE
     Indication: IMMUNOSUPPRESSANT DRUG THERAPY
     Dosage: 7.25MG

REACTIONS (2)
  - Insomnia [Unknown]
  - Cough [Recovered/Resolved]
